FAERS Safety Report 4601906-0 (Version None)
Quarter: 2005Q1

REPORT INFORMATION
  Report Type: 
  Country: None (occurrence: None)
  Receive Date: 20050201
  Receipt Date: 20031211
  Transmission Date: 20050727
  Serious: Yes (Other)
  Sender: FDA-Public Use
  Company Number: 200330260BWH

PATIENT
  Age: 90 Year
  Sex: Male

DRUGS (2)
  1. AVELOX [Suspect]
     Indication: LUNG INFECTION
     Dosage: 400 MG, ONCE, ORAL
     Route: 048
     Dates: start: 20030704
  2. DIABETIC MEDICATION [Concomitant]

REACTIONS (2)
  - CLOSTRIDIUM COLITIS [None]
  - DIARRHOEA [None]
